FAERS Safety Report 6389003-8 (Version None)
Quarter: 2009Q4

REPORT INFORMATION
  Report Type: 
  Country: None (occurrence: None)
  Receive Date: 20091001
  Receipt Date: 20090915
  Transmission Date: 20100525
  Serious: Yes (Other)
  Sender: FDA-Public Use
  Company Number: 2008S1009164

PATIENT
  Age: 62 Year
  Sex: Female
  Weight: 124.7392 kg

DRUGS (10)
  1. PHOSPHOSODA FLAVOR NOT SPECIFIED [Suspect]
     Indication: COLONOSCOPY
     Dosage: 90 ML;PO
     Route: 048
     Dates: start: 20050619, end: 20050619
  2. LIPITOR [Concomitant]
  3. SYNTHROID [Concomitant]
  4. AVANDAMET [Concomitant]
  5. BENICAR HCT [Concomitant]
  6. NEXIUM /01479303/ [Concomitant]
  7. TRICOR [Concomitant]
  8. METOCLOPRAMIDE HCL /00041902/ [Concomitant]
  9. VI-Q-TUSS [Concomitant]
  10. CIPRO /00042702/ [Concomitant]

REACTIONS (14)
  - ABASIA [None]
  - ANAEMIA [None]
  - ASTHENIA [None]
  - BACK PAIN [None]
  - DEHYDRATION [None]
  - DEPRESSION [None]
  - DIALYSIS [None]
  - DISCOMFORT [None]
  - FATIGUE [None]
  - GENERALISED OEDEMA [None]
  - INSOMNIA [None]
  - NAUSEA [None]
  - PAIN [None]
  - RENAL FAILURE CHRONIC [None]
